FAERS Safety Report 8774020 (Version 1)
Quarter: 2012Q4

REPORT INFORMATION
  Report Type: 
  Country: US (occurrence: US)
  Receive Date: 20120907
  Receipt Date: 20120907
  Transmission Date: 20130627
  Serious: Yes (Other)
  Sender: FDA-Public Use
  Company Number: US-SANOFI-AVENTIS-2012SA062771

PATIENT
  Age: 79 Year
  Sex: Female

DRUGS (4)
  1. LANTUS [Suspect]
     Dosage: Dose:20 unit(s)
     Route: 058
  2. LANTUS SOLOSTAR [Suspect]
     Dosage: Dose:20 unit(s)
     Route: 058
  3. SOLOSTAR [Suspect]
  4. SOLOSTAR [Suspect]

REACTIONS (3)
  - Visual impairment [Unknown]
  - Eye haemorrhage [Unknown]
  - Blindness [Unknown]
